FAERS Safety Report 13127810 (Version 3)
Quarter: 2017Q2

REPORT INFORMATION
  Report Type: Report from Study
  Country: KR (occurrence: KR)
  Receive Date: 20170118
  Receipt Date: 20170407
  Transmission Date: 20170830
  Serious: Yes (Hospitalization)
  Sender: FDA-Public Use
  Company Number: KR-EISAI MEDICAL RESEARCH-EC-2017-024062

PATIENT
  Age: 46 Year
  Sex: Female
  Weight: 47 kg

DRUGS (7)
  1. LEGALON [Concomitant]
     Active Substance: MILK THISTLE
  2. HALAVEN [Suspect]
     Active Substance: ERIBULIN MESYLATE
     Route: 041
     Dates: start: 20160905, end: 20160926
  3. GRASIN [Concomitant]
  4. DICAMAX [Concomitant]
  5. URSA [Concomitant]
  6. ZOMETA [Concomitant]
     Active Substance: ZOLEDRONIC ACID
  7. HALAVEN [Suspect]
     Active Substance: ERIBULIN MESYLATE
     Indication: BREAST CANCER
     Route: 041
     Dates: start: 20150918, end: 20160818

REACTIONS (2)
  - Diarrhoea [Recovered/Resolved]
  - Neutropenia [Recovered/Resolved]

NARRATIVE: CASE EVENT DATE: 20160830
